FAERS Safety Report 15036664 (Version 1)
Quarter: 2018Q2

REPORT INFORMATION
  Report Type: Spontaneous
  Country: US (occurrence: US)
  Receive Date: 20180620
  Receipt Date: 20180620
  Transmission Date: 20180711
  Serious: No
  Sender: FDA-Public Use
  Company Number: US-ASTRAZENECA-2018SE70103

PATIENT
  Age: 27331 Day
  Sex: Male
  Weight: 136.1 kg

DRUGS (1)
  1. BYDUREON [Suspect]
     Active Substance: EXENATIDE
     Indication: BLOOD GLUCOSE ABNORMAL
     Route: 058
     Dates: start: 201801

REACTIONS (7)
  - Injection site haemorrhage [Recovered/Resolved]
  - Abdominal discomfort [Unknown]
  - Product quality issue [Unknown]
  - Frequent bowel movements [Unknown]
  - Intentional product misuse [Unknown]
  - Bowel movement irregularity [Unknown]
  - Skin disorder [Unknown]

NARRATIVE: CASE EVENT DATE: 20180523
